FAERS Safety Report 16220071 (Version 1)
Quarter: 2019Q2

REPORT INFORMATION
  Report Type: Report from Study
  Country: US (occurrence: US)
  Receive Date: 20190420
  Receipt Date: 20190420
  Transmission Date: 20190711
  Serious: No
  Sender: FDA-Public Use
  Company Number: US-009507513-1904USA008177

PATIENT
  Sex: Male

DRUGS (11)
  1. METOPROLOL. [Concomitant]
     Active Substance: METOPROLOL
  2. ONDANSETRON [Concomitant]
     Active Substance: ONDANSETRON
  3. KLOR-CON [Concomitant]
     Active Substance: POTASSIUM CHLORIDE
  4. MOTRIN [Concomitant]
     Active Substance: IBUPROFEN
  5. NEXIUM [Concomitant]
     Active Substance: ESOMEPRAZOLE MAGNESIUM
  6. ELOCON [Concomitant]
     Active Substance: MOMETASONE FUROATE
  7. AMLODIPINE [Concomitant]
     Active Substance: AMLODIPINE BESYLATE
  8. LIPITOR [Concomitant]
     Active Substance: ATORVASTATIN CALCIUM
  9. MOVANTIK [Concomitant]
     Active Substance: NALOXEGOL OXALATE
  10. NASONEX [Suspect]
     Active Substance: MOMETASONE FUROATE
     Indication: HYPERSENSITIVITY
     Dosage: 50, 2 PUFFS DAILY, SOMETIMES HAS TO USE 3 OR 4 PUFFS A DAY
     Route: 048
  11. OXYCODONE [Concomitant]
     Active Substance: OXYCODONE

REACTIONS (4)
  - Product use in unapproved indication [Unknown]
  - Inappropriate schedule of product administration [Unknown]
  - Hypersensitivity [Not Recovered/Not Resolved]
  - Incorrect route of product administration [Unknown]
